FAERS Safety Report 5694985-3 (Version None)
Quarter: 2008Q2

REPORT INFORMATION
  Report Type: 
  Country: None (occurrence: None)
  Receive Date: 20080404
  Receipt Date: 20080325
  Transmission Date: 20081010
  Serious: Yes (Other)
  Sender: FDA-Public Use
  Company Number: US-JNJFOC-20080306244

PATIENT
  Age: 55 Year
  Sex: Female

DRUGS (2)
  1. TRAMADOL HCL [Suspect]
     Indication: PAIN MANAGEMENT
     Dosage: AS NEEDED
  2. TIZANIDINE HCL [Concomitant]
     Indication: PAIN
     Dosage: AS NEEDED
     Route: 065

REACTIONS (2)
  - HEPATIC ENZYME INCREASED [None]
  - THERAPEUTIC RESPONSE UNEXPECTED [None]
